APPROVED DRUG PRODUCT: BETHANECHOL CHLORIDE
Active Ingredient: BETHANECHOL CHLORIDE
Strength: 10MG
Dosage Form/Route: TABLET;ORAL
Application: A088288 | Product #001
Applicant: ASCOT HOSP PHARMACEUTICALS INC DIV TRAVENOL LABORATORIES INC
Approved: Jun 8, 1983 | RLD: No | RS: No | Type: DISCN